FAERS Safety Report 4980533-X (Version None)
Quarter: 2006Q2

REPORT INFORMATION
  Report Type: 
  Country: None (occurrence: None)
  Receive Date: 20060424
  Receipt Date: 20060412
  Transmission Date: 20061013
  Serious: Yes (Other)
  Sender: FDA-Public Use
  Company Number: NL-AVENTIS-200614181GDDC

PATIENT
  Age: 58 Year
  Sex: Male

DRUGS (3)
  1. LANTUS [Suspect]
     Dosage: DOSE: 20-30; DOSE UNIT: UNITS
     Route: 058
  2. LANTUS [Suspect]
     Dosage: DOSE UNIT: UNITS
  3. NOVORAPID [Concomitant]
     Dosage: DOSE: UNK

REACTIONS (2)
  - PALPITATIONS [None]
  - SHOCK [None]
